FAERS Safety Report 20087148 (Version 3)
Quarter: 2022Q2

REPORT INFORMATION
  Report Type: Report from Study
  Country: DE (occurrence: DE)
  Receive Date: 20211118
  Receipt Date: 20220412
  Transmission Date: 20220721
  Serious: Yes (Hospitalization, Other)
  Sender: FDA-Public Use
  Company Number: DE-PFM-2020-20708

PATIENT
  Age: 52 Year
  Sex: Male

DRUGS (17)
  1. OMEPRAZOLE [Suspect]
     Active Substance: OMEPRAZOLE
     Indication: Nausea
     Dosage: UNK
     Route: 065
     Dates: start: 20201124, end: 20210807
  2. METOCLOPRAMIDE [Suspect]
     Active Substance: METOCLOPRAMIDE
     Indication: Nausea
     Dosage: 1 DOSAGE FORM, QD (1 DF, QD (1/DAY))
     Route: 065
     Dates: start: 20200909
  3. DEXAMETHASONE [Suspect]
     Active Substance: DEXAMETHASONE
     Indication: Epilepsy
     Dosage: UNK
     Route: 065
  4. ENCORAFENIB [Suspect]
     Active Substance: ENCORAFENIB
     Indication: Malignant melanoma
     Dosage: 450 MILLIGRAM (450 MG, DAILY)
     Route: 048
     Dates: start: 20200909, end: 20210504
  5. NIVOLUMAB [Suspect]
     Active Substance: NIVOLUMAB
     Indication: Product used for unknown indication
     Dosage: UNK, START 05-MAY-2021
     Route: 065
  6. IPILIMUMAB [Suspect]
     Active Substance: IPILIMUMAB
     Indication: Product used for unknown indication
     Dosage: UNK, START 05-MAY-2021
     Route: 065
  7. COBIMETINIB [Suspect]
     Active Substance: COBIMETINIB
     Indication: Product used for unknown indication
     Dosage: UNK, START 01-JUN-2021
     Route: 065
  8. VEMURAFENIB [Suspect]
     Active Substance: VEMURAFENIB
     Indication: Product used for unknown indication
     Dosage: UNK, START 01-JUN-2021
     Route: 065
  9. BINIMETINIB [Suspect]
     Active Substance: BINIMETINIB
     Indication: Malignant melanoma
     Dosage: 45 MG, BID (2/DAY)
     Route: 048
     Dates: start: 20200909, end: 20210504
  10. PANTOPRAZOLE SODIUM [Concomitant]
     Active Substance: PANTOPRAZOLE SODIUM
     Indication: Product used for unknown indication
     Dosage: 20 MILLIGRAM, QD
     Route: 065
     Dates: start: 2001, end: 20201123
  11. PANTOPRAZOLE SODIUM [Concomitant]
     Active Substance: PANTOPRAZOLE SODIUM
     Dosage: 1 DOSAGE FORM, QD,1 DF, QD (1/DAY)
     Route: 065
     Dates: start: 2001, end: 20201123
  12. BISOPROLOL FUMARATE [Concomitant]
     Active Substance: BISOPROLOL FUMARATE
     Indication: Product used for unknown indication
     Dosage: 2.5 MILLIGRAM, QD
     Route: 065
     Dates: start: 2018
  13. BISOPROLOL FUMARATE [Concomitant]
     Active Substance: BISOPROLOL FUMARATE
     Dosage: 1 DOSAGE FORM, QD,1 DF, QD (1/DAY)
     Route: 065
     Dates: start: 2018, end: 20210807
  14. LEVETIRACETAM [Concomitant]
     Active Substance: LEVETIRACETAM
     Indication: Epilepsy
     Dosage: UNK, START 08-JUL-2021
     Route: 065
  15. RAMIPRIL [Concomitant]
     Active Substance: RAMIPRIL
     Indication: Product used for unknown indication
     Dosage: 2.5 MILLIGRAM, BID (2.5 MG, BID (2/DAY))
     Route: 065
     Dates: start: 2015
  16. RAMIPRIL [Concomitant]
     Active Substance: RAMIPRIL
     Dosage: 1 DOSAGE FORM, BID,1 DF, BID (2/DAY)
     Route: 065
     Dates: start: 2015, end: 20210807
  17. BETAMETHASONE [Concomitant]
     Active Substance: BETAMETHASONE
     Indication: Rash
     Dosage: UNK, START 02-JUN-2021
     Route: 065
     Dates: end: 20210807

REACTIONS (9)
  - Hemiparesis [Unknown]
  - Aphasia [Unknown]
  - Brain stem haemorrhage [Unknown]
  - Cerebral haemorrhage [Recovered/Resolved with Sequelae]
  - Metastasis [Recovered/Resolved]
  - Dysphagia [Unknown]
  - Vertigo [Recovered/Resolved]
  - Headache [Recovered/Resolved]
  - Rash [Recovered/Resolved]

NARRATIVE: CASE EVENT DATE: 20210218
